FAERS Safety Report 11259533 (Version 2)
Quarter: 2015Q3

REPORT INFORMATION
  Report Type: Spontaneous
  Country: US (occurrence: US)
  Receive Date: 20150710
  Receipt Date: 20150902
  Transmission Date: 20151125
  Serious: No
  Sender: FDA-Public Use
  Company Number: PHEH2015US013252

PATIENT
  Age: 7 Year
  Sex: Female

DRUGS (3)
  1. ALBUTEROL SOLUTION [Concomitant]
     Indication: CYSTIC FIBROSIS
     Dosage: 2 ML, QD (NEBULIZER)
     Route: 055
     Dates: start: 20140121
  2. TOBI [Suspect]
     Active Substance: TOBRAMYCIN
     Indication: CYSTIC FIBROSIS
     Dosage: 300MG/5ML, ^NEBULIZE/ VIAL BID^
     Route: 055
     Dates: start: 20150706
  3. VITAMAX ORANGE [Concomitant]
     Indication: CYSTIC FIBROSIS
     Dosage: QD
     Route: 048
     Dates: start: 20141023

REACTIONS (2)
  - Inappropriate schedule of drug administration [Unknown]
  - Off label use [Unknown]

NARRATIVE: CASE EVENT DATE: 20150708
